FAERS Safety Report 8210823-9 (Version None)
Quarter: 2012Q1

REPORT INFORMATION
  Report Type: 
  Country: None (occurrence: None)
  Receive Date: 20120315
  Receipt Date: 20120309
  Transmission Date: 20120608
  Serious: No
  Sender: FDA-Public Use
  Company Number: US-BIOGENIDEC-2012BI008782

PATIENT
  Sex: Male

DRUGS (2)
  1. TYSABRI [Suspect]
     Indication: MULTIPLE SCLEROSIS
     Route: 042
     Dates: start: 20090511, end: 20100323
  2. TYSABRI [Suspect]
     Route: 042
     Dates: start: 20120305

REACTIONS (3)
  - MEMORY IMPAIRMENT [None]
  - HYPOAESTHESIA [None]
  - FALL [None]
